FAERS Safety Report 7326085-0 (Version None)
Quarter: 2011Q1

REPORT INFORMATION
  Report Type: 
  Country: None (occurrence: None)
  Receive Date: 20110302
  Receipt Date: 20101230
  Transmission Date: 20110831
  Serious: Yes (Hospitalization)
  Sender: FDA-Public Use
  Company Number: FR-ROCHE-751206

PATIENT
  Age: 47 Year
  Sex: Male

DRUGS (11)
  1. CELLCEPT [Suspect]
     Route: 065
     Dates: start: 20100601
  2. CELLCEPT [Suspect]
     Route: 065
     Dates: start: 20100301, end: 20100501
  3. NEXIUM [Concomitant]
  4. CORTANCYL [Concomitant]
  5. LEDERFOLINE [Concomitant]
  6. BIPERIDYS [Concomitant]
  7. TRIATEC [Concomitant]
  8. GAVISCON [Concomitant]
  9. TOPALGIC [Concomitant]
  10. AMLOR [Concomitant]
  11. BACTRIM [Concomitant]

REACTIONS (8)
  - NAUSEA [None]
  - DIARRHOEA [None]
  - VOMITING [None]
  - DEHYDRATION [None]
  - DYSPNOEA [None]
  - DYSURIA [None]
  - GASTROOESOPHAGEAL REFLUX DISEASE [None]
  - WEIGHT DECREASED [None]
